FAERS Safety Report 6449220-5 (Version None)
Quarter: 2009Q4

REPORT INFORMATION
  Report Type: 
  Country: None (occurrence: None)
  Receive Date: 20091120
  Receipt Date: 20091007
  Transmission Date: 20100525
  Serious: Yes (Other)
  Sender: FDA-Public Use
  Company Number: JP-SANOFI-AVENTIS-200912535JP

PATIENT
  Age: 64 Year
  Sex: Female

DRUGS (4)
  1. FEXOFENADINE HCL [Suspect]
     Route: 048
     Dates: start: 20090827
  2. LIPITOR [Concomitant]
     Route: 048
  3. ADONA [Concomitant]
     Route: 048
     Dates: start: 20090827
  4. TRANSAMIN [Concomitant]
     Route: 048
     Dates: start: 20090827

REACTIONS (9)
  - ABDOMINAL PAIN UPPER [None]
  - ALANINE AMINOTRANSFERASE INCREASED [None]
  - ASPARTATE AMINOTRANSFERASE INCREASED [None]
  - BLOOD BILIRUBIN INCREASED [None]
  - HEPATIC FUNCTION ABNORMAL [None]
  - MALAISE [None]
  - NAUSEA [None]
  - PYREXIA [None]
  - VOMITING [None]
